FAERS Safety Report 9123771 (Version 1)
Quarter: 2013Q1

REPORT INFORMATION
  Report Type: Spontaneous
  Country: US (occurrence: US)
  Receive Date: 20130227
  Receipt Date: 20130227
  Transmission Date: 20140127
  Serious: Yes (Death)
  Sender: FDA-Public Use
  Company Number: US-ROCHE-1194074

PATIENT
  Age: 64 Year
  Sex: Female

DRUGS (40)
  1. NAPROXEN [Suspect]
     Indication: PRODUCT USED FOR UNKNOWN INDICATION
     Route: 048
  2. NAPROXEN [Suspect]
     Dosage: OVERDOSE
     Route: 048
  3. DESIPRAMINE [Suspect]
     Indication: PRODUCT USED FOR UNKNOWN INDICATION
     Route: 048
  4. DESIPRAMINE [Suspect]
     Dosage: OVERDOSE
     Route: 048
  5. DILTIAZEM [Suspect]
     Indication: PRODUCT USED FOR UNKNOWN INDICATION
     Route: 048
  6. DILTIAZEM [Suspect]
     Dosage: OVERDOSE
     Route: 048
  7. VENLAFAXINE [Suspect]
     Indication: PRODUCT USED FOR UNKNOWN INDICATION
     Route: 048
  8. VENLAFAXINE [Suspect]
     Dosage: OVERDOSE
     Route: 048
  9. LAMOTRIGINE [Suspect]
     Indication: PRODUCT USED FOR UNKNOWN INDICATION
     Route: 048
  10. LAMOTRIGINE [Suspect]
     Dosage: OVERDOSE
     Route: 048
  11. HYDROCHLOROTHIAZIDE [Suspect]
     Indication: PRODUCT USED FOR UNKNOWN INDICATION
     Route: 048
  12. HYDROCHLOROTHIAZIDE [Suspect]
     Dosage: OVERDOSE
     Route: 048
  13. ARMODAFINIL [Suspect]
     Indication: PRODUCT USED FOR UNKNOWN INDICATION
     Route: 048
  14. ARMODAFINIL [Suspect]
     Dosage: OVERDOSE
     Route: 048
  15. POTASSIUM CHLORIDE [Suspect]
     Indication: PRODUCT USED FOR UNKNOWN INDICATION
     Route: 048
  16. POTASSIUM CHLORIDE [Suspect]
     Dosage: OVERDOSE
     Route: 048
  17. TRIFLUOPERAZINE [Suspect]
     Indication: PRODUCT USED FOR UNKNOWN INDICATION
     Route: 048
  18. TRIFLUOPERAZINE [Suspect]
     Dosage: OVERDOSE
     Route: 048
  19. ESCITALOPRAM [Suspect]
     Indication: PRODUCT USED FOR UNKNOWN INDICATION
     Route: 048
  20. ESCITALOPRAM [Suspect]
     Dosage: OVERDOSE
     Route: 048
  21. PANTOPRAZOLE [Suspect]
     Indication: PRODUCT USED FOR UNKNOWN INDICATION
     Route: 048
  22. PANTOPRAZOLE [Suspect]
     Dosage: OVERDOSE
     Route: 048
  23. LANSOPRAZOLE [Suspect]
     Indication: PRODUCT USED FOR UNKNOWN INDICATION
     Route: 048
  24. LANSOPRAZOLE [Suspect]
     Dosage: OVERDOSE
     Route: 048
  25. ROSUVASTATIN [Suspect]
     Indication: PRODUCT USED FOR UNKNOWN INDICATION
     Route: 048
  26. ROSUVASTATIN [Suspect]
     Dosage: OVERDOSE
     Route: 048
  27. NITROFURANTOIN [Suspect]
     Indication: PRODUCT USED FOR UNKNOWN INDICATION
     Route: 048
  28. NITROFURANTOIN [Suspect]
     Dosage: OVERDOSE
     Route: 048
  29. DICLOFENAC [Suspect]
     Indication: PRODUCT USED FOR UNKNOWN INDICATION
     Route: 048
  30. DICLOFENAC [Suspect]
     Dosage: OVERDOSE
     Route: 048
  31. ACETAMINOPHEN\HYDROCODONE [Suspect]
     Indication: PRODUCT USED FOR UNKNOWN INDICATION
     Route: 048
  32. ACETAMINOPHEN\HYDROCODONE [Suspect]
     Dosage: OVERDOSE
     Route: 048
  33. ACETAMINOPHEN/PROPOXYPHENE [Suspect]
     Indication: PRODUCT USED FOR UNKNOWN INDICATION
     Route: 048
  34. ACETAMINOPHEN/PROPOXYPHENE [Suspect]
     Dosage: OVERDOSE
     Route: 048
  35. SOLIFENACIN [Suspect]
     Indication: PRODUCT USED FOR UNKNOWN INDICATION
     Route: 048
  36. SOLIFENACIN [Suspect]
     Dosage: OVERDOSE
     Route: 048
  37. CIPROFLOXACIN [Suspect]
     Indication: PRODUCT USED FOR UNKNOWN INDICATION
     Route: 048
  38. CIPROFLOXACIN [Suspect]
     Dosage: OVERDOSE
     Route: 048
  39. PROGESTIN [Suspect]
     Indication: PRODUCT USED FOR UNKNOWN INDICATION
     Route: 048
  40. PROGESTIN [Suspect]
     Dosage: OVERDOSE
     Route: 048

REACTIONS (1)
  - Toxicity to various agents [Fatal]
